FAERS Safety Report 16107048 (Version 2)
Quarter: 2019Q2

REPORT INFORMATION
  Report Type: Report from Study
  Country: KR (occurrence: KR)
  Receive Date: 20190322
  Receipt Date: 20190419
  Transmission Date: 20190711
  Serious: Yes (Hospitalization)
  Sender: FDA-Public Use
  Company Number: KR-ASTRAZENECA-2019SE40242

PATIENT
  Age: 45 Year
  Sex: Female
  Weight: 55.9 kg

DRUGS (12)
  1. LAMICTAL [Suspect]
     Active Substance: LAMOTRIGINE
     Indication: BREAST CANCER
     Route: 065
     Dates: start: 20180509
  2. ALPRAM [Suspect]
     Active Substance: ALPRAZOLAM
     Indication: BREAST CANCER
     Route: 065
     Dates: start: 20181017
  3. ATIVAN [Suspect]
     Active Substance: LORAZEPAM
     Indication: BREAST CANCER
     Route: 065
     Dates: start: 20180509
  4. BLINDED OLAPARIB [Suspect]
     Active Substance: OLAPARIB
     Indication: BREAST CANCER
     Route: 048
     Dates: start: 20180808
  5. DEPAKOTE [Suspect]
     Active Substance: DIVALPROEX SODIUM
     Indication: SUPPORTIVE CARE
     Route: 065
     Dates: start: 20190308, end: 20190309
  6. GASMOTIN [Concomitant]
     Active Substance: MOSAPRIDE CITRATE
     Indication: SUPPORTIVE CARE
     Route: 065
     Dates: start: 20180904
  7. SEROQUEL [Suspect]
     Active Substance: QUETIAPINE FUMARATE
     Indication: BREAST CANCER
     Route: 065
     Dates: start: 20181127
  8. INDENOLOL [Suspect]
     Active Substance: INDENOLOL
     Indication: BREAST CANCER
     Route: 065
     Dates: start: 20181017
  9. PHAZYME [Concomitant]
     Active Substance: DIMETHICONE 410
     Indication: SUPPORTIVE CARE
     Route: 065
     Dates: start: 20180904
  10. BLINDED PLACEBO [Suspect]
     Active Substance: INVESTIGATIONAL PRODUCT
     Indication: BREAST CANCER
     Dosage: TWO TIMES A DAY
     Route: 048
     Dates: start: 20180808
  11. DEPAS (ETIZOLAM) [Suspect]
     Active Substance: ETIZOLAM
     Indication: BREAST CANCER
     Route: 065
     Dates: start: 20180509
  12. MGO [Concomitant]
     Active Substance: MAGNESIUM OXIDE
     Indication: SUPPORTIVE CARE
     Route: 065
     Dates: start: 20190307

REACTIONS (1)
  - Bipolar disorder [Recovered/Resolved]

NARRATIVE: CASE EVENT DATE: 20190214
